FAERS Safety Report 10207167 (Version 1)
Quarter: 2014Q2

REPORT INFORMATION
  Report Type: Spontaneous
  Country: US (occurrence: US)
  Receive Date: 20140530
  Receipt Date: 20140530
  Transmission Date: 20141212
  Serious: No
  Sender: FDA-Public Use
  Company Number: US-LUNDBECK-DKLU1099705

PATIENT
  Age: 1 Year
  Sex: Female

DRUGS (5)
  1. SABRIL (FOR ORAL SOLUTION) [Suspect]
     Indication: INFANTILE SPASMS
  2. SABRIL (FOR ORAL SOLUTION) [Suspect]
  3. SABRIL (FOR ORAL SOLUTION) [Suspect]
     Dosage: OVERDOSE: 450MG IN AM
  4. SABRIL (FOR ORAL SOLUTION) [Suspect]
     Dosage: OVERDOSE: 900MG IN PM
  5. SABRIL (FOR ORAL SOLUTION) [Suspect]

REACTIONS (4)
  - Incorrect dose administered [Recovered/Resolved]
  - Wrong technique in drug usage process [Recovered/Resolved]
  - Accidental overdose [Recovered/Resolved]
  - Drug dose omission [Unknown]
